FAERS Safety Report 17555660 (Version 2)
Quarter: 2020Q2

REPORT INFORMATION
  Report Type: Report from Study
  Country: US (occurrence: US)
  Receive Date: 20200318
  Receipt Date: 20200416
  Transmission Date: 20200713
  Serious: Yes (Death, Hospitalization)
  Sender: FDA-Public Use
  Company Number: US-BAYER-2020-023222

PATIENT
  Age: 53 Year
  Sex: Female
  Weight: 68.03 kg

DRUGS (13)
  1. STIVARGA [Suspect]
     Active Substance: REGORAFENIB
     Indication: COLON CANCER
     Dosage: DAILY DOSE 160 MG 21 OUT OF 28 DAYS
     Route: 048
  2. LORAZEPAM. [Concomitant]
     Active Substance: LORAZEPAM
  3. STIVARGA [Suspect]
     Active Substance: REGORAFENIB
     Indication: COLON CANCER
     Dosage: DAILY DOSE 160 MG FOR WEEK 3
  4. SENNOSIDE A+B [Concomitant]
     Active Substance: SENNOSIDES A AND B
  5. ALEVE [Concomitant]
     Active Substance: NAPROXEN SODIUM
  6. PROCHLORPERAZINE MALEATE. [Concomitant]
     Active Substance: PROCHLORPERAZINE MALEATE
     Dosage: UNK
  7. METHYLPHENIDATE. [Concomitant]
     Active Substance: METHYLPHENIDATE
  8. DRONABINOL. [Concomitant]
     Active Substance: DRONABINOL
     Dosage: UNK
  9. STIVARGA [Suspect]
     Active Substance: REGORAFENIB
     Indication: COLON CANCER
     Dosage: DAILY DOSE 120 MG FOR WEEK 2
  10. OXYCODONE [Concomitant]
     Active Substance: OXYCODONE
  11. PRILOSEC [Concomitant]
     Active Substance: OMEPRAZOLE MAGNESIUM
  12. STIVARGA [Suspect]
     Active Substance: REGORAFENIB
     Indication: COLON CANCER
     Dosage: DAILY DOSE 80 MG FOR WEEK 1
     Dates: start: 20200127
  13. OXYCONTIN [Concomitant]
     Active Substance: OXYCODONE HYDROCHLORIDE

REACTIONS (6)
  - Limb discomfort [None]
  - Death [Fatal]
  - Hospitalisation [None]
  - Off label use [None]
  - Hypoaesthesia [None]
  - Fatigue [None]

NARRATIVE: CASE EVENT DATE: 20200309
